FAERS Safety Report 25706634 (Version 1)
Quarter: 2025Q3

REPORT INFORMATION
  Report Type: Spontaneous
  Country: US (occurrence: US)
  Receive Date: 20250820
  Receipt Date: 20250820
  Transmission Date: 20251021
  Serious: No
  Sender: CIPLA
  Company Number: US-CIPLA LTD.-2024US10378

PATIENT

DRUGS (2)
  1. SAJAZIR [Suspect]
     Active Substance: ICATIBANT ACETATE
     Indication: Complement factor abnormal
     Route: 058
     Dates: start: 2024
  2. SAJAZIR [Concomitant]
     Active Substance: ICATIBANT ACETATE
     Indication: Product used for unknown indication
     Route: 065

REACTIONS (2)
  - Hereditary angioedema [Unknown]
  - Stress [Unknown]

NARRATIVE: CASE EVENT DATE: 20240101
